FAERS Safety Report 7241421-1 (Version None)
Quarter: 2011Q1

REPORT INFORMATION
  Report Type: 
  Country: None (occurrence: None)
  Receive Date: 20110124
  Receipt Date: 20110113
  Transmission Date: 20110831
  Serious: Yes (Hospitalization)
  Sender: FDA-Public Use
  Company Number: FR-ASTRAZENECA-2010SE45085

PATIENT
  Age: 10 Month
  Sex: Male
  Weight: 8.4 kg

DRUGS (5)
  1. FLIXOTIDE [Concomitant]
     Indication: LARYNGITIS
  2. CELESTONE [Concomitant]
     Indication: LARYNGITIS
  3. VENTOLIN [Concomitant]
     Indication: LARYNGITIS
  4. NEXIUM [Suspect]
     Indication: GASTROOESOPHAGEAL REFLUX DISEASE
     Route: 048
     Dates: start: 20100401, end: 20100901
  5. GAVISCON [Concomitant]

REACTIONS (3)
  - CHOLESTASIS [None]
  - TRANSAMINASES INCREASED [None]
  - CYTOLYTIC HEPATITIS [None]
